FAERS Safety Report 5075837-9 (Version None)
Quarter: 2006Q3

REPORT INFORMATION
  Report Type: 
  Country: None (occurrence: None)
  Receive Date: 20060807
  Receipt Date: 20060807
  Transmission Date: 20061208
  Serious: Yes (Hospitalization)
  Sender: FDA-Public Use
  Company Number: None

PATIENT
  Age: 42 Year
  Sex: Male
  Weight: 42.6381 kg

DRUGS (15)
  1. DOCETAXEL [Suspect]
     Indication: LIP AND/OR ORAL CAVITY CANCER
     Dosage: 45MG  QWK X 3 WKS  IV
     Route: 042
     Dates: start: 20051230
  2. DOCETAXEL [Suspect]
     Indication: LIP AND/OR ORAL CAVITY CANCER
     Dosage: 45MG  QWK X 3 WKS  IV
     Route: 042
     Dates: start: 20060106
  3. DOCETAXEL [Suspect]
     Indication: LIP AND/OR ORAL CAVITY CANCER
     Dosage: 45MG  QWK X 3 WKS  IV
     Route: 042
     Dates: start: 20060113
  4. DOCETAXEL [Suspect]
     Indication: LIP AND/OR ORAL CAVITY CANCER
     Dosage: 45MG  QWK X 3 WKS  IV
     Route: 042
     Dates: start: 20060127
  5. DOCETAXEL [Suspect]
     Indication: LIP AND/OR ORAL CAVITY CANCER
     Dosage: 45MG  QWK X 3 WKS  IV
     Route: 042
     Dates: start: 20060203
  6. DOCETAXEL [Suspect]
     Indication: LIP AND/OR ORAL CAVITY CANCER
     Dosage: 45MG  QWK X 3 WKS  IV
     Route: 042
     Dates: start: 20060303
  7. CARBOPLATIN [Suspect]
     Indication: LIP AND/OR ORAL CAVITY CANCER
     Dosage: 900MG  ONCE Q. 4 WKS   IV
     Route: 042
     Dates: start: 20051230
  8. CARBOPLATIN [Suspect]
     Indication: LIP AND/OR ORAL CAVITY CANCER
     Dosage: 900MG  ONCE Q. 4 WKS   IV
     Route: 042
     Dates: start: 20060127
  9. CARBOPLATIN [Suspect]
     Indication: LIP AND/OR ORAL CAVITY CANCER
     Dosage: 900MG  ONCE Q. 4 WKS   IV
     Route: 042
     Dates: start: 20060303
  10. IFOSFAMIDE [Suspect]
     Indication: LIP AND/OR ORAL CAVITY CANCER
     Dosage: 1500MG  Q ?? X 3 WKS  IV
     Route: 042
     Dates: start: 20051230
  11. IFOSFAMIDE [Suspect]
     Indication: LIP AND/OR ORAL CAVITY CANCER
     Dosage: 1500MG  Q ?? X 3 WKS  IV
     Route: 042
     Dates: start: 20060106
  12. IFOSFAMIDE [Suspect]
     Indication: LIP AND/OR ORAL CAVITY CANCER
     Dosage: 1500MG  Q ?? X 3 WKS  IV
     Route: 042
     Dates: start: 20060113
  13. IFOSFAMIDE [Suspect]
     Indication: LIP AND/OR ORAL CAVITY CANCER
     Dosage: 1500MG  Q ?? X 3 WKS  IV
     Route: 042
     Dates: start: 20060127
  14. IFOSFAMIDE [Suspect]
     Indication: LIP AND/OR ORAL CAVITY CANCER
     Dosage: 1500MG  Q ?? X 3 WKS  IV
     Route: 042
     Dates: start: 20060203
  15. IFOSFAMIDE [Suspect]
     Indication: LIP AND/OR ORAL CAVITY CANCER
     Dosage: 1500MG  Q ?? X 3 WKS  IV
     Route: 042
     Dates: start: 20060303

REACTIONS (9)
  - ANAEMIA [None]
  - DEHYDRATION [None]
  - DYSPHAGIA [None]
  - NEUTROPENIA [None]
  - ORAL INTAKE REDUCED [None]
  - ORAL PAIN [None]
  - THERAPEUTIC RESPONSE DECREASED [None]
  - THROMBOCYTOPENIA [None]
  - WEIGHT DECREASED [None]
